FAERS Safety Report 7903050-3 (Version None)
Quarter: 2011Q4

REPORT INFORMATION
  Report Type: 
  Country: None (occurrence: None)
  Receive Date: 20111104
  Receipt Date: 20111024
  Transmission Date: 20120403
  Serious: Yes (Hospitalization)
  Sender: FDA-Public Use
  Company Number: 2011SP050390

PATIENT
  Age: 51 Year
  Sex: Female

DRUGS (9)
  1. METFORMIN HCL [Concomitant]
  2. SPIRIVA [Concomitant]
  3. DULERA ORAL INHALATION [Suspect]
     Indication: ASTHMA
     Dosage: 2 DF;BID;INH
     Route: 055
     Dates: start: 20110809
  4. DIAVAN [Concomitant]
  5. EFFIENT [Concomitant]
  6. FLOVENT [Concomitant]
  7. ZETIA [Concomitant]
  8. TAGAMET [Concomitant]
  9. DUONEBS [Concomitant]

REACTIONS (1)
  - RASH [None]
